FAERS Safety Report 10393135 (Version 1)
Quarter: 2014Q3

REPORT INFORMATION
  Report Type: Spontaneous
  Country: US (occurrence: US)
  Receive Date: 20140819
  Receipt Date: 20140819
  Transmission Date: 20150326
  Serious: Yes (Other)
  Sender: FDA-Public Use
  Company Number: US-BAYER-2014-122603

PATIENT
  Age: 37 Year
  Sex: Female

DRUGS (2)
  1. MAGNEVIST [Suspect]
     Active Substance: GADOPENTETATE DIMEGLUMINE
     Indication: VISUAL FIELD DEFECT
  2. MAGNEVIST [Suspect]
     Active Substance: GADOPENTETATE DIMEGLUMINE
     Indication: NUCLEAR MAGNETIC RESONANCE IMAGING BRAIN
     Dosage: 12 ML ON RIGHT ANTECUBITAL, ONCE
     Route: 042
     Dates: start: 20140814, end: 20140814

REACTIONS (8)
  - Throat irritation [None]
  - Nausea [None]
  - Vomiting [None]
  - Salivary hypersecretion [None]
  - Urticaria [Recovered/Resolved]
  - Dyspnoea [None]
  - Dysphagia [None]
  - Throat tightness [None]

NARRATIVE: CASE EVENT DATE: 20140814
